FAERS Safety Report 8552803-X (Version None)
Quarter: 2012Q3

REPORT INFORMATION
  Report Type: 
  Country: None (occurrence: None)
  Receive Date: 20120731
  Receipt Date: 20120727
  Transmission Date: 20120928
  Serious: No
  Sender: FDA-Public Use
  Company Number: US-PFIZER INC-2012145066

PATIENT
  Sex: Female
  Weight: 65.76 kg

DRUGS (2)
  1. GEODON [Suspect]
     Indication: BIPOLAR DISORDER
     Dosage: 80 MG, 1X/DAY
     Route: 048
     Dates: start: 20100101, end: 20110101
  2. GEODON [Suspect]
     Indication: INSOMNIA
     Dosage: 40 MG, 1X/DAY
     Route: 048
     Dates: start: 20110101

REACTIONS (6)
  - ALOPECIA [None]
  - HAIR TEXTURE ABNORMAL [None]
  - HAIR DISORDER [None]
  - MUSCLE SPASMS [None]
  - TREMOR [None]
  - TRICHORRHEXIS [None]
